FAERS Safety Report 7156627-X (Version None)
Quarter: 2010Q4

REPORT INFORMATION
  Report Type: 
  Country: None (occurrence: None)
  Receive Date: 20101214
  Receipt Date: 20091201
  Transmission Date: 20110411
  Serious: No
  Sender: FDA-Public Use
  Company Number: US-ASTRAZENECA-2009SE14211

PATIENT
  Age: 67 Year
  Sex: Female
  Weight: 86.2 kg

DRUGS (4)
  1. CRESTOR [Suspect]
     Route: 048
  2. CRESTOR [Suspect]
     Route: 048
  3. CRESTOR [Suspect]
     Route: 048
     Dates: start: 20090701
  4. CRESTOR [Suspect]
     Route: 048

REACTIONS (6)
  - BACK PAIN [None]
  - BLOOD TRIGLYCERIDES INCREASED [None]
  - CONSTIPATION [None]
  - DIZZINESS [None]
  - FLATULENCE [None]
  - HIGH DENSITY LIPOPROTEIN DECREASED [None]
